FAERS Safety Report 5135165-X (Version None)
Quarter: 2006Q4

REPORT INFORMATION
  Report Type: 
  Country: None (occurrence: None)
  Receive Date: 20061026
  Receipt Date: 20061020
  Transmission Date: 20070319
  Serious: Yes (Death, Other)
  Sender: FDA-Public Use
  Company Number: PHBS2006NO16240

PATIENT
  Age: 23 Year
  Sex: Male

DRUGS (2)
  1. PREDNISOLON [Concomitant]
     Dates: start: 20040916
  2. LAMISIL [Suspect]
     Indication: NAIL TINEA
     Dosage: 250 MG EVERY OTHER DAY
     Route: 048

REACTIONS (3)
  - CEREBRAL HAEMORRHAGE [None]
  - PETECHIAE [None]
  - THROMBOCYTOPENIA [None]
